FAERS Safety Report 24923745 (Version 2)
Quarter: 2025Q3

REPORT INFORMATION
  Report Type: Spontaneous
  Country: CA (occurrence: CA)
  Receive Date: 20250204
  Receipt Date: 20250809
  Transmission Date: 20251020
  Serious: Yes (Hospitalization, Other)
  Sender: ALEXION PHARMACEUTICALS
  Company Number: None

PATIENT
  Age: 71 Year
  Sex: Female
  Weight: 69 kg

DRUGS (59)
  1. PULMICORT TURBUHALER [Suspect]
     Active Substance: BUDESONIDE
  2. ACETAMINOPHEN [Suspect]
     Active Substance: ACETAMINOPHEN
  3. ADALIMUMAB [Suspect]
     Active Substance: ADALIMUMAB
  4. ALPRAZOLAM [Suspect]
     Active Substance: ALPRAZOLAM
  5. AMOXICILLIN TRIHYDRATE [Suspect]
     Active Substance: AMOXICILLIN
  6. ATORVASTATIN CALCIUM [Suspect]
     Active Substance: ATORVASTATIN CALCIUM
  7. ATROPINE [Suspect]
     Active Substance: ATROPINE
  8. AZITHROMYCIN DIHYDRATE [Suspect]
     Active Substance: AZITHROMYCIN DIHYDRATE
  9. BETAMETHASONE [Suspect]
     Active Substance: BETAMETHASONE
  10. BETAMETHASONE VALERATE [Suspect]
     Active Substance: BETAMETHASONE VALERATE
  11. BIAXIN [Suspect]
     Active Substance: CLARITHROMYCIN
  12. BISACODYL [Suspect]
     Active Substance: BISACODYL
  13. CALCIUM CARBONATE [Suspect]
     Active Substance: CALCIUM CARBONATE
  14. CALCIUM CARBONATE\CHOLECALCIFEROL [Suspect]
     Active Substance: CALCIUM CARBONATE\CHOLECALCIFEROL
  15. CALCIUM LACTATE [Concomitant]
     Active Substance: CALCIUM LACTATE
  16. CETIRIZINE HYDROCHLORIDE [Suspect]
     Active Substance: CETIRIZINE HYDROCHLORIDE
  17. CLARITHROMYCIN [Suspect]
     Active Substance: CLARITHROMYCIN
  18. CLOTRIMAZOLE [Suspect]
     Active Substance: CLOTRIMAZOLE
  19. CUPRIC OXIDE [Suspect]
     Active Substance: CUPRIC OXIDE
  20. .ALPHA.-TOCOPHEROL, D- [Suspect]
     Active Substance: .ALPHA.-TOCOPHEROL, D-
  21. DESONIDE [Suspect]
     Active Substance: DESONIDE
  22. DIPHENHYDRAMINE [Suspect]
     Active Substance: DIPHENHYDRAMINE
  23. ENTOCORT [Suspect]
     Active Substance: BUDESONIDE
  24. ENTYVIO [Suspect]
     Active Substance: VEDOLIZUMAB
  25. ENTYVIO [Suspect]
     Active Substance: VEDOLIZUMAB
  26. ERTAPENEM SODIUM [Suspect]
     Active Substance: ERTAPENEM SODIUM
  27. FLUTICASONE FUROATE [Suspect]
     Active Substance: FLUTICASONE FUROATE
  28. FLUTICASONE PROPIONATE [Suspect]
     Active Substance: FLUTICASONE PROPIONATE
  29. GLYCERIN [Suspect]
     Active Substance: GLYCERIN
  30. GRAMICIDIN [Suspect]
     Active Substance: GRAMICIDIN
  31. HYDROMORPHONE HYDROCHLORIDE [Suspect]
     Active Substance: HYDROMORPHONE HYDROCHLORIDE
  32. INFLIXIMAB [Suspect]
     Active Substance: INFLIXIMAB
  33. ISONIAZID [Suspect]
     Active Substance: ISONIAZID
  34. LOPERAMIDE [Concomitant]
     Active Substance: LOPERAMIDE
  35. LOPERAMIDE HYDROCHLORIDE [Suspect]
     Active Substance: LOPERAMIDE HYDROCHLORIDE
  36. MAGNESIUM SULFATE [Suspect]
     Active Substance: MAGNESIUM SULFATE
  37. MESALAMINE [Suspect]
     Active Substance: MESALAMINE
  38. METOCLOPRAMIDE HYDROCHLORIDE [Concomitant]
     Active Substance: METOCLOPRAMIDE HYDROCHLORIDE
  39. METRONIDAZOLE [Suspect]
     Active Substance: METRONIDAZOLE
  40. MIDAZOLAM HYDROCHLORIDE [Suspect]
     Active Substance: MIDAZOLAM HYDROCHLORIDE
  41. MORPHINE SULFATE [Suspect]
     Active Substance: MORPHINE SULFATE
  42. MUPIROCIN [Suspect]
     Active Substance: MUPIROCIN
  43. NADOLOL [Suspect]
     Active Substance: NADOLOL
  44. NICODERM CQ [Suspect]
     Active Substance: NICOTINE
  45. NICOTINE [Suspect]
     Active Substance: NICOTINE
  46. NICOTINE POLACRILEX [Suspect]
     Active Substance: NICOTINE
  47. PANTOPRAZOLE SODIUM [Suspect]
     Active Substance: PANTOPRAZOLE SODIUM
  48. POTASSIUM CHLORIDE [Suspect]
     Active Substance: POTASSIUM CHLORIDE
  49. PREDNISONE [Suspect]
     Active Substance: PREDNISONE
  50. PREGABALIN [Suspect]
     Active Substance: PREGABALIN
  51. CELLULOSE [Suspect]
     Active Substance: POWDERED CELLULOSE
  52. SODIUM CHLORIDE [Suspect]
     Active Substance: SODIUM CHLORIDE
  53. SULFAMETHOXAZOLE [Suspect]
     Active Substance: SULFAMETHOXAZOLE
  54. TRIAMCINOLONE ACETONIDE [Suspect]
     Active Substance: TRIAMCINOLONE ACETONIDE
  55. VALSARTAN [Concomitant]
     Active Substance: VALSARTAN
  56. VITAMIN D3 [Suspect]
     Active Substance: CHOLECALCIFEROL
  57. XANTOFYL PALMITATE [Suspect]
     Active Substance: XANTOFYL PALMITATE
  58. ZEAXANTHIN [Suspect]
     Active Substance: ZEAXANTHIN
  59. ZINC OXIDE [Suspect]
     Active Substance: ZINC OXIDE

REACTIONS (30)
  - Abdominal pain [Not Recovered/Not Resolved]
  - Anaemia [Not Recovered/Not Resolved]
  - Chronic sinusitis [Not Recovered/Not Resolved]
  - Colitis [Not Recovered/Not Resolved]
  - Colitis ulcerative [Not Recovered/Not Resolved]
  - Constipation [Not Recovered/Not Resolved]
  - Drug ineffective [Not Recovered/Not Resolved]
  - Dyspepsia [Not Recovered/Not Resolved]
  - Erythema [Not Recovered/Not Resolved]
  - Female genital tract fistula [Not Recovered/Not Resolved]
  - Frequent bowel movements [Not Recovered/Not Resolved]
  - Haematochezia [Not Recovered/Not Resolved]
  - Headache [Not Recovered/Not Resolved]
  - Infusion related reaction [Not Recovered/Not Resolved]
  - Macular degeneration [Not Recovered/Not Resolved]
  - Malaise [Not Recovered/Not Resolved]
  - Nausea [Not Recovered/Not Resolved]
  - Off label use [Not Recovered/Not Resolved]
  - Oral candidiasis [Not Recovered/Not Resolved]
  - Pain [Not Recovered/Not Resolved]
  - Paraesthesia oral [Not Recovered/Not Resolved]
  - Procedural pain [Not Recovered/Not Resolved]
  - Proctitis [Not Recovered/Not Resolved]
  - Pyrexia [Not Recovered/Not Resolved]
  - Radiculopathy [Not Recovered/Not Resolved]
  - Rectal haemorrhage [Not Recovered/Not Resolved]
  - Therapeutic product effect incomplete [Not Recovered/Not Resolved]
  - Vaginal discharge [Not Recovered/Not Resolved]
  - Vaginal flatulence [Not Recovered/Not Resolved]
  - Weight decreased [Not Recovered/Not Resolved]
